FAERS Safety Report 4636514-9 (Version None)
Quarter: 2005Q2

REPORT INFORMATION
  Report Type: 
  Country: None (occurrence: None)
  Receive Date: 20050414
  Receipt Date: 20050414
  Transmission Date: 20051028
  Serious: Yes (Death)
  Sender: FDA-Public Use
  Company Number: None

PATIENT
  Age: 83 Year
  Sex: Male
  Weight: 83.9154 kg

DRUGS (1)
  1. VIOXX [Suspect]
     Dosage: CAPSULE   DAILY  ORAL
     Route: 048

REACTIONS (2)
  - CIRCULATORY COLLAPSE [None]
  - FEELING ABNORMAL [None]
